FAERS Safety Report 9557596 (Version 1)
Quarter: 2013Q3

REPORT INFORMATION
  Report Type: Report from Study
  Country: US (occurrence: US)
  Receive Date: 20130926
  Receipt Date: 20130926
  Transmission Date: 20140515
  Serious: Yes (Hospitalization)
  Sender: FDA-Public Use
  Company Number: US-GLAXOSMITHKLINE-A1042695A

PATIENT
  Age: 68 Year
  Sex: Female
  Weight: 75.6 kg

DRUGS (12)
  1. LAPATINIB [Suspect]
     Indication: BREAST CANCER METASTATIC
     Dosage: 1250MG PER DAY
     Route: 048
     Dates: start: 20130625, end: 20130915
  2. FEMARA [Suspect]
     Indication: BREAST CANCER METASTATIC
     Dosage: 2.5MG PER DAY
     Route: 048
     Dates: start: 20130625, end: 20130915
  3. EVEROLIMUS [Suspect]
     Indication: BREAST CANCER METASTATIC
     Dosage: 5MG PER DAY
     Route: 048
     Dates: start: 20130625, end: 20130915
  4. NORVASC [Concomitant]
     Dosage: 10MG PER DAY
     Route: 048
  5. CRESTOR [Concomitant]
     Dosage: 10MG PER DAY
     Route: 048
  6. ASACOL [Concomitant]
     Dosage: 400MG TWICE PER DAY
     Route: 048
  7. AZULFIDINE [Concomitant]
     Dosage: 500MG TWICE PER DAY
     Route: 048
  8. HYZAAR [Concomitant]
     Dosage: 1TAB PER DAY
  9. ASPIRIN [Concomitant]
     Dosage: 325MG PER DAY
     Route: 048
  10. OSCAL D [Concomitant]
  11. VITAMIN D [Concomitant]
     Dosage: 2000MG PER DAY
     Route: 048
  12. LIALDA [Concomitant]
     Dosage: 1.2G PER DAY
     Route: 048

REACTIONS (3)
  - Nausea [Unknown]
  - Abdominal discomfort [Unknown]
  - Dizziness [Unknown]
